FAERS Safety Report 9851939 (Version 3)
Quarter: 2014Q1

REPORT INFORMATION
  Report Type: Spontaneous
  Country: DE (occurrence: DE)
  Receive Date: 20140129
  Receipt Date: 20140210
  Transmission Date: 20141002
  Serious: Yes (Other)
  Sender: FDA-Public Use
  Company Number: DE-JNJFOC-20131214727

PATIENT
  Age: 74 Year
  Sex: Female

DRUGS (10)
  1. PALEXIA RETARD [Suspect]
     Indication: NECK PAIN
     Route: 048
     Dates: end: 201312
  2. PALEXIA RETARD [Suspect]
     Indication: NECK PAIN
     Route: 048
     Dates: start: 201306
  3. PALEXIA RETARD [Suspect]
     Indication: BACK PAIN
     Route: 048
     Dates: start: 201306
  4. PALEXIA RETARD [Suspect]
     Indication: BACK PAIN
     Route: 048
     Dates: end: 201312
  5. NORSPAN [Concomitant]
     Indication: PRODUCT USED FOR UNKNOWN INDICATION
     Route: 062
     Dates: start: 201312
  6. NORSPAN [Concomitant]
     Indication: PRODUCT USED FOR UNKNOWN INDICATION
     Route: 062
  7. DELIX [Concomitant]
     Indication: PRODUCT USED FOR UNKNOWN INDICATION
     Route: 048
  8. HCT [Concomitant]
     Indication: PRODUCT USED FOR UNKNOWN INDICATION
     Route: 048
  9. SIMVASTATIN [Concomitant]
     Indication: PRODUCT USED FOR UNKNOWN INDICATION
     Route: 048
  10. THYROXIN [Concomitant]
     Indication: PRODUCT USED FOR UNKNOWN INDICATION
     Route: 048

REACTIONS (2)
  - Macular degeneration [Unknown]
  - Visual impairment [Not Recovered/Not Resolved]
